FAERS Safety Report 20713959 (Version 1)
Quarter: 2022Q2

REPORT INFORMATION
  Report Type: Spontaneous
  Country: US (occurrence: None)
  Receive Date: 20220414
  Receipt Date: 20220414
  Transmission Date: 20220720
  Serious: No
  Sender: FDA-Public Use
  Company Number: None

PATIENT
  Age: 16 Month
  Sex: Female
  Weight: 10.35 kg

DRUGS (2)
  1. HYDROCORTISONE [Suspect]
     Active Substance: HYDROCORTISONE
     Indication: Dermatitis atopic
     Dosage: FREQUENCY : TWICE A DAY;?
     Route: 061
     Dates: start: 20220325, end: 20220407
  2. DIETARY SUPPLEMENT [Concomitant]
     Active Substance: DIETARY SUPPLEMENT

REACTIONS (6)
  - Rash [None]
  - Dry skin [None]
  - Skin exfoliation [None]
  - Skin discolouration [None]
  - Skin fissures [None]
  - Dry skin [None]

NARRATIVE: CASE EVENT DATE: 20220409
